FAERS Safety Report 6337441-1 (Version None)
Quarter: 2009Q3

REPORT INFORMATION
  Report Type: 
  Country: None (occurrence: None)
  Receive Date: 20090902
  Receipt Date: 20070607
  Transmission Date: 20100115
  Serious: Yes (Hospitalization, Other)
  Sender: FDA-Public Use
  Company Number: US-ASTRAZENECA-2006UW07968

PATIENT
  Age: 43 Year
  Sex: Female
  Weight: 127.5 kg

DRUGS (34)
  1. SEROQUEL [Suspect]
     Indication: DEPRESSION
     Dosage: 300 MG TO 600 MG
     Route: 048
     Dates: start: 20010101, end: 20030601
  2. SEROQUEL [Suspect]
     Indication: ANXIETY
     Dosage: 300 MG TO 600 MG
     Route: 048
     Dates: start: 20010101, end: 20030601
  3. SEROQUEL [Suspect]
     Indication: SLEEP DISORDER
     Dosage: 300 MG TO 600 MG
     Route: 048
     Dates: start: 20010101, end: 20030601
  4. SEROQUEL [Suspect]
     Indication: INSOMNIA
     Dosage: 300 MG TO 600 MG
     Route: 048
     Dates: start: 20010101, end: 20030601
  5. SEROQUEL [Suspect]
     Dosage: 75 MG - 600 MG
     Route: 048
     Dates: start: 20010112, end: 20060818
  6. SEROQUEL [Suspect]
     Dosage: 75 MG - 600 MG
     Route: 048
     Dates: start: 20010112, end: 20060818
  7. SEROQUEL [Suspect]
     Dosage: 75 MG - 600 MG
     Route: 048
     Dates: start: 20010112, end: 20060818
  8. SEROQUEL [Suspect]
     Dosage: 75 MG - 600 MG
     Route: 048
     Dates: start: 20010112, end: 20060818
  9. SEROQUEL [Suspect]
     Dosage: 25MG - 75MG
     Route: 048
     Dates: start: 20010901, end: 20011201
  10. SEROQUEL [Suspect]
     Dosage: 25MG - 75MG
     Route: 048
     Dates: start: 20010901, end: 20011201
  11. SEROQUEL [Suspect]
     Dosage: 25MG - 75MG
     Route: 048
     Dates: start: 20010901, end: 20011201
  12. SEROQUEL [Suspect]
     Dosage: 25MG - 75MG
     Route: 048
     Dates: start: 20010901, end: 20011201
  13. SEROQUEL [Suspect]
     Dosage: 600MG - 625MG
     Route: 048
     Dates: start: 20030801, end: 20060801
  14. SEROQUEL [Suspect]
     Dosage: 600MG - 625MG
     Route: 048
     Dates: start: 20030801, end: 20060801
  15. SEROQUEL [Suspect]
     Dosage: 600MG - 625MG
     Route: 048
     Dates: start: 20030801, end: 20060801
  16. SEROQUEL [Suspect]
     Dosage: 600MG - 625MG
     Route: 048
     Dates: start: 20030801, end: 20060801
  17. ZOLOFT [Concomitant]
     Dates: start: 20000101
  18. ZOLOFT [Concomitant]
     Route: 048
     Dates: start: 20020222
  19. RISPERDAL [Concomitant]
     Route: 048
     Dates: start: 20010809
  20. RISPERDAL [Concomitant]
     Dates: start: 20010801, end: 20010901
  21. RISPERDAL [Concomitant]
     Dates: start: 20020201
  22. PROTONIX [Concomitant]
     Route: 048
     Dates: start: 20050929
  23. XANAX [Concomitant]
     Indication: ANXIETY
     Route: 048
     Dates: start: 20010720
  24. PROZAC [Concomitant]
     Route: 048
     Dates: start: 20010619
  25. NEURONTIN [Concomitant]
     Route: 048
     Dates: start: 20010916
  26. CELEXA [Concomitant]
     Dosage: 20 MG - 40 MG
     Route: 048
     Dates: start: 20010721
  27. PREVACID [Concomitant]
     Route: 048
     Dates: start: 20011113
  28. PREDNISONE/ METHYL PREDNISOLONE [Concomitant]
     Route: 048
     Dates: start: 20030502
  29. FUROSEMIDE [Concomitant]
     Route: 048
     Dates: start: 20041201
  30. ATENOLOL [Concomitant]
     Dates: start: 20030214
  31. ATIVAN [Concomitant]
     Route: 048
     Dates: start: 20050311
  32. AMBIEN [Concomitant]
     Route: 048
     Dates: start: 20050720
  33. MEDROXYPROGESTERONE [Concomitant]
     Route: 048
     Dates: start: 20041027
  34. WELLBUTRIN [Concomitant]
     Route: 048
     Dates: start: 20010721

REACTIONS (31)
  - ABDOMINAL INFECTION [None]
  - ABDOMINAL PAIN [None]
  - ABSCESS LIMB [None]
  - ACCIDENTAL OVERDOSE [None]
  - ARTERIOGRAM CORONARY NORMAL [None]
  - ARTHRITIS [None]
  - ASTHMA [None]
  - BRONCHIAL HYPERREACTIVITY [None]
  - CARDIAC DISORDER [None]
  - CELLULITIS [None]
  - CHRONIC OBSTRUCTIVE PULMONARY DISEASE [None]
  - DIABETES MELLITUS [None]
  - ERYSIPELAS [None]
  - HYPERGLYCAEMIA [None]
  - HYPERTENSION [None]
  - INTENTIONAL OVERDOSE [None]
  - LUNG DISORDER [None]
  - LUNG NEOPLASM [None]
  - MUSCULOSKELETAL PAIN [None]
  - NECK PAIN [None]
  - OBESITY [None]
  - OSTEOARTHRITIS [None]
  - PAIN IN EXTREMITY [None]
  - PNEUMONIA [None]
  - RADICULOPATHY [None]
  - RESPIRATORY FAILURE [None]
  - ROTATOR CUFF SYNDROME [None]
  - SINUS HEADACHE [None]
  - TACHYCARDIA [None]
  - TYPE 2 DIABETES MELLITUS [None]
  - WEIGHT INCREASED [None]
